FAERS Safety Report 14022155 (Version 18)
Quarter: 2020Q1

REPORT INFORMATION
  Report Type: Spontaneous
  Country: US (occurrence: US)
  Receive Date: 20170928
  Receipt Date: 20200309
  Transmission Date: 20200409
  Serious: Yes (Hospitalization)
  Sender: FDA-Public Use
  Company Number: US-ACTELION-A-NJ2017-160202

PATIENT
  Age: 41 Year
  Sex: Female
  Weight: 77.1 kg

DRUGS (4)
  1. REMODULIN [Suspect]
     Active Substance: TREPROSTINIL
     Dosage: 60 NG/KG, PER MIN
     Route: 042
  2. OPSUMIT [Suspect]
     Active Substance: MACITENTAN
     Indication: PULMONARY ARTERIAL HYPERTENSION
     Dosage: 10 MG, QD
     Route: 048
     Dates: start: 20170829
  3. REMODULIN [Suspect]
     Active Substance: TREPROSTINIL
     Indication: PRODUCT USED FOR UNKNOWN INDICATION
     Dosage: 0.028 ML/HR, CONT INFUS
     Route: 042
  4. REMODULIN [Suspect]
     Active Substance: TREPROSTINIL
     Dosage: 0.024 ML/HR, CONT INFUS
     Route: 042

REACTIONS (29)
  - Pain in jaw [Unknown]
  - Nausea [Not Recovered/Not Resolved]
  - Catheter site infection [Not Recovered/Not Resolved]
  - Infusion site pain [Unknown]
  - Dyspnoea [Unknown]
  - Diarrhoea [Unknown]
  - Injection site nodule [Unknown]
  - Dehydration [Unknown]
  - Decreased appetite [Not Recovered/Not Resolved]
  - Tachycardia [Not Recovered/Not Resolved]
  - Vomiting [Unknown]
  - Infusion site irritation [Unknown]
  - Pyrexia [Not Recovered/Not Resolved]
  - Blister rupture [Unknown]
  - Headache [Not Recovered/Not Resolved]
  - Injection site pruritus [Unknown]
  - Fluid retention [Not Recovered/Not Resolved]
  - Infusion site discharge [Unknown]
  - Catheter site inflammation [Unknown]
  - Pain [Not Recovered/Not Resolved]
  - Infection [Unknown]
  - Myalgia [Not Recovered/Not Resolved]
  - Pruritus [Recovered/Resolved]
  - Administration site odour [Unknown]
  - Gastrointestinal disorder [Unknown]
  - Skin irritation [Not Recovered/Not Resolved]
  - Catheter site dermatitis [Unknown]
  - Chest pain [Unknown]
  - Injection site infection [Not Recovered/Not Resolved]

NARRATIVE: CASE EVENT DATE: 20180212
